FAERS Safety Report 5730745-2 (Version None)
Quarter: 2008Q2

REPORT INFORMATION
  Report Type: 
  Country: None (occurrence: None)
  Receive Date: 20080502
  Receipt Date: 20080421
  Transmission Date: 20081010
  Serious: Yes (Other)
  Sender: FDA-Public Use
  Company Number: 163-21880-08030311

PATIENT
  Age: 67 Year
  Sex: Female

DRUGS (2)
  1. REVLIMID [Suspect]
     Indication: MULTIPLE MYELOMA
     Dosage: 25 MG, DAILY FOR 21 DAYS, ORAL
     Route: 048
     Dates: start: 20070101, end: 20071130
  2. DECADRON [Concomitant]

REACTIONS (6)
  - DIARRHOEA [None]
  - LYMPHOPROLIFERATIVE DISORDER [None]
  - MULTIPLE MYELOMA [None]
  - NON-HODGKIN'S LYMPHOMA [None]
  - VIRAL INFECTION [None]
  - VOMITING [None]
